FAERS Safety Report 18495647 (Version 2)
Quarter: 2021Q3

REPORT INFORMATION
  Report Type: Report from Study
  Country: RU (occurrence: RU)
  Receive Date: 20201112
  Receipt Date: 20210716
  Transmission Date: 20211014
  Serious: Yes (Other)
  Sender: FDA-Public Use
  Company Number: NVSC2020RU295902

PATIENT
  Sex: Female

DRUGS (2)
  1. TRAMETINIB [Suspect]
     Active Substance: TRAMETINIB
     Indication: CHEMOTHERAPY
     Dosage: STANDARD DOSE
     Route: 065
     Dates: start: 201912
  2. TAFINLAR [Suspect]
     Active Substance: DABRAFENIB MESYLATE
     Indication: CHEMOTHERAPY
     Dosage: STANDARD DOSE
     Route: 065
     Dates: start: 201912

REACTIONS (3)
  - Body temperature increased [Unknown]
  - Peripheral swelling [Unknown]
  - Pneumonia viral [Unknown]

NARRATIVE: CASE EVENT DATE: 202009
